FAERS Safety Report 12218726 (Version 6)
Quarter: 2016Q2

REPORT INFORMATION
  Report Type: Spontaneous
  Country: US (occurrence: US)
  Receive Date: 20160329
  Receipt Date: 20160531
  Transmission Date: 20160815
  Serious: Yes (Hospitalization)
  Sender: FDA-Public Use
  Company Number: US-PFIZER INC-2016158269

PATIENT
  Age: 60 Year
  Sex: Male
  Weight: 68.93 kg

DRUGS (13)
  1. VITAMIN D [Concomitant]
     Active Substance: CHOLECALCIFEROL
     Dosage: UNK
  2. HYDROCORTISONE. [Concomitant]
     Active Substance: HYDROCORTISONE
     Dosage: UNK
  3. LISINOPRIL. [Concomitant]
     Active Substance: LISINOPRIL
     Dosage: UNK
  4. VITAMIN B1 THIAMINE [Concomitant]
     Dosage: UNK
  5. TYLENOL [Concomitant]
     Active Substance: ACETAMINOPHEN
     Dosage: UNK
  6. SUTENT [Suspect]
     Active Substance: SUNITINIB MALATE
     Indication: RENAL CANCER STAGE IV
     Dosage: 50 MG, CYCLIC (28 DAYS ON/14 DAYS OFF)
     Dates: start: 20160301, end: 20160315
  7. FLOMAX [Concomitant]
     Active Substance: TAMSULOSIN HYDROCHLORIDE
     Dosage: UNK
  8. SUTENT [Suspect]
     Active Substance: SUNITINIB MALATE
     Indication: METASTATIC RENAL CELL CARCINOMA
     Dosage: 37.5 MG, CYCLIC (2 WEEKS ON/1 WEEK OFF)
     Dates: start: 20160415, end: 20160514
  9. FOLIC ACID. [Concomitant]
     Active Substance: FOLIC ACID
     Dosage: UNK
  10. POTASSIUM [Concomitant]
     Active Substance: POTASSIUM
     Dosage: UNK
  11. LASIX [Concomitant]
     Active Substance: FUROSEMIDE
     Dosage: UNK
  12. SULFATHIAZOLE [Concomitant]
     Active Substance: SULFATHIAZOLE
     Dosage: UNK
  13. HYDROCODONE BITARTRATE AND ACETAMINOPHEN [Concomitant]
     Active Substance: ACETAMINOPHEN\HYDROCODONE BITARTRATE
     Dosage: UNK

REACTIONS (23)
  - Epistaxis [Unknown]
  - Gastric dilatation [Not Recovered/Not Resolved]
  - Toothache [Unknown]
  - Gait disturbance [Unknown]
  - Abdominal discomfort [Unknown]
  - Headache [Unknown]
  - Pain [Unknown]
  - Diarrhoea [Unknown]
  - Wound [Unknown]
  - Oral discomfort [Unknown]
  - Peripheral swelling [Unknown]
  - Oral pain [Not Recovered/Not Resolved]
  - Rash [Recovered/Resolved]
  - Musculoskeletal pain [Unknown]
  - Groin pain [Unknown]
  - Pulmonary oedema [Not Recovered/Not Resolved]
  - Testicular disorder [Recovering/Resolving]
  - Throat irritation [Unknown]
  - Pain in extremity [Not Recovered/Not Resolved]
  - Insomnia [Unknown]
  - Blister [Recovering/Resolving]
  - Weight increased [Unknown]
  - Skin exfoliation [Unknown]

NARRATIVE: CASE EVENT DATE: 2016
